FAERS Safety Report 5023418-5 (Version None)
Quarter: 2006Q2

REPORT INFORMATION
  Report Type: 
  Country: None (occurrence: None)
  Receive Date: 20060612
  Receipt Date: 20060418
  Transmission Date: 20061013
  Serious: Yes (Other)
  Sender: FDA-Public Use
  Company Number: 2006GB00654

PATIENT
  Sex: Male

DRUGS (7)
  1. SEROQUEL [Suspect]
     Indication: BIPOLAR DISORDER
     Route: 048
     Dates: start: 20051201
  2. SEROQUEL [Suspect]
     Dosage: REDUCED DOSE
     Route: 048
  3. LITHIUM CARBONATE [Concomitant]
     Indication: BIPOLAR DISORDER
     Route: 048
  4. VALPROATE SODIUM [Concomitant]
     Route: 048
     Dates: start: 20000101, end: 20051201
  5. LAMOTRIGINE [Concomitant]
     Route: 048
     Dates: start: 20050401
  6. HALOPERIDOL [Concomitant]
     Route: 048
     Dates: start: 20050401, end: 20051001
  7. MIRTAZAPINE [Concomitant]
     Indication: ANTIDEPRESSANT THERAPY
     Route: 048
     Dates: start: 20050701, end: 20051001

REACTIONS (4)
  - JAW DISORDER [None]
  - MOVEMENT DISORDER [None]
  - SPEECH DISORDER [None]
  - TARDIVE DYSKINESIA [None]
